FAERS Safety Report 8827343 (Version 1)
Quarter: 2012Q4

REPORT INFORMATION
  Report Type: 
  Country: US (occurrence: US)
  Receive Date: 20121005
  Receipt Date: 20121005
  Transmission Date: 20130627
  Serious: Yes (Other)
  Sender: FDA-Public Use
  Company Number: US-ASTRAZENECA-2011SE67852

PATIENT
  Age: 50 Year
  Sex: Female
  Weight: 48.1 kg

DRUGS (6)
  1. SYMBICORT [Suspect]
     Indication: CHRONIC OBSTRUCTIVE PULMONARY DISEASE
     Dosage: 160 MCG 2 PUFFS BID
     Route: 055
     Dates: start: 200906
  2. SYMBICORT [Suspect]
     Indication: CHRONIC OBSTRUCTIVE PULMONARY DISEASE
     Dosage: 2 PUFFS BID
     Route: 055
     Dates: start: 201004
  3. VENTOLIN INHALER [Concomitant]
  4. KADIAN [Concomitant]
     Indication: ARTHRITIS
  5. LYRICA [Concomitant]
     Indication: FIBROMYALGIA
  6. OXICODONE [Concomitant]
     Indication: PAIN

REACTIONS (5)
  - Narrow anterior chamber angle [Unknown]
  - Intraocular pressure increased [Unknown]
  - Sinusitis [Unknown]
  - Headache [Unknown]
  - Intentional drug misuse [Unknown]
